FAERS Safety Report 4655360-3 (Version None)
Quarter: 2005Q2

REPORT INFORMATION
  Report Type: 
  Country: None (occurrence: None)
  Receive Date: 20050505
  Receipt Date: 20050415
  Transmission Date: 20051028
  Serious: Yes (Other)
  Sender: FDA-Public Use
  Company Number: USA050495763

PATIENT
  Age: 60 Year
  Sex: Female

DRUGS (9)
  1. CYMBALTA [Suspect]
     Indication: DEPRESSION
     Dosage: 30 MG DAY
     Dates: start: 20050413, end: 20050413
  2. FUROSEMIDE [Concomitant]
  3. GLUCOTROL [Concomitant]
  4. GLUCOPHAGE [Concomitant]
  5. ACCUPRIL [Concomitant]
  6. TOPROL-XL [Concomitant]
  7. LEXAPRO [Concomitant]
  8. PREVACID [Concomitant]
  9. ASPIRIN [Concomitant]

REACTIONS (1)
  - BLOOD PRESSURE INCREASED [None]
